FAERS Safety Report 25667393 (Version 2)
Quarter: 2025Q3

REPORT INFORMATION
  Report Type: Report from Study
  Country: US (occurrence: US)
  Receive Date: 20250811
  Receipt Date: 20250827
  Transmission Date: 20251020
  Serious: Yes (Other)
  Sender: MALLINCKRODT
  Company Number: US-MALLINCKRODT-MNK202504855

PATIENT
  Sex: Female

DRUGS (1)
  1. CORTICOTROPIN [Suspect]
     Active Substance: CORTICOTROPIN
     Indication: Product used for unknown indication

REACTIONS (2)
  - Stevens-Johnson syndrome [Unknown]
  - Menstrual disorder [Unknown]

NARRATIVE: CASE EVENT DATE: 20200101
